FAERS Safety Report 6105307-8 (Version None)
Quarter: 2009Q1

REPORT INFORMATION
  Report Type: 
  Country: None (occurrence: None)
  Receive Date: 20090227
  Receipt Date: 20080104
  Transmission Date: 20090719
  Serious: Yes (Other)
  Sender: FDA-Public Use
  Company Number: RB-8902-2008

PATIENT
  Age: 26 Year
  Sex: Female
  Weight: 72.5755 kg

DRUGS (5)
  1. SUBOXONE [Suspect]
     Indication: DRUG DEPENDENCE
     Dosage: 8 MG QD SUBLINGUAL, 8 MG QD SUBLINGUAL, 8 MG QD SUBLINGUAL
     Route: 060
     Dates: start: 20060101, end: 20060101
  2. SUBOXONE [Suspect]
     Indication: DRUG DEPENDENCE
     Dosage: 8 MG QD SUBLINGUAL, 8 MG QD SUBLINGUAL, 8 MG QD SUBLINGUAL
     Route: 060
     Dates: start: 20060201, end: 20070401
  3. SUBOXONE [Suspect]
     Indication: DRUG DEPENDENCE
     Dosage: 8 MG QD SUBLINGUAL, 8 MG QD SUBLINGUAL, 8 MG QD SUBLINGUAL
     Route: 060
     Dates: start: 20071218
  4. SUBUTEX [Suspect]
     Indication: DRUG DEPENDENCE
     Dosage: 8 MG QD SUBLINGUAL, 8 MG QD SUBLINGUAL
     Route: 060
     Dates: start: 20060101, end: 20060201
  5. SUBUTEX [Suspect]
     Indication: DRUG DEPENDENCE
     Dosage: 8 MG QD SUBLINGUAL, 8 MG QD SUBLINGUAL
     Route: 060
     Dates: start: 20070401, end: 20071217

REACTIONS (2)
  - ABORTION SPONTANEOUS [None]
  - DRUG EXPOSURE DURING PREGNANCY [None]
